FAERS Safety Report 16687928 (Version 1)
Quarter: 2019Q3

REPORT INFORMATION
  Report Type: Spontaneous
  Country: US (occurrence: US)
  Receive Date: 20190809
  Receipt Date: 20190809
  Transmission Date: 20191004
  Serious: No
  Sender: FDA-Public Use
  Company Number: US-MYLANLABS-2019M1071342

PATIENT
  Age: 58 Year
  Sex: Female
  Weight: 66 kg

DRUGS (2)
  1. ESTRADIOL VAGINAL CREAM USP [Suspect]
     Active Substance: ESTRADIOL
     Dosage: 1 GRAM, 3XW (AFTER TWO WEEKS)
     Route: 067
     Dates: end: 201907
  2. ESTRADIOL VAGINAL CREAM USP [Suspect]
     Active Substance: ESTRADIOL
     Indication: PRODUCT USED FOR UNKNOWN INDICATION
     Dosage: 1 GRAM, QD (FOR TWO WEEKS)
     Dates: start: 201907

REACTIONS (3)
  - Product quality issue [Recovered/Resolved]
  - Application site pain [Recovered/Resolved]
  - Application site irritation [Recovered/Resolved]

NARRATIVE: CASE EVENT DATE: 201907
